FAERS Safety Report 23960251 (Version 5)
Quarter: 2024Q4

REPORT INFORMATION
  Report Type: Spontaneous
  Country: AT (occurrence: AT)
  Receive Date: 20240611
  Receipt Date: 20241210
  Transmission Date: 20250114
  Serious: Yes (Other)
  Sender: MERCK
  Company Number: AT-ASTELLAS-2024US014752

PATIENT
  Age: 59 Year
  Sex: Male

DRUGS (10)
  1. PEMBROLIZUMAB [Suspect]
     Active Substance: PEMBROLIZUMAB
     Indication: Transitional cell carcinoma
     Dosage: UNK UNK, CYCLICAL
     Dates: start: 20230801, end: 2024
  2. ENFORTUMAB VEDOTIN [Suspect]
     Active Substance: ENFORTUMAB VEDOTIN
     Indication: Transitional cell carcinoma
     Dosage: UNK UNK, CYCLICAL
     Route: 065
     Dates: start: 20230801
  3. ENFORTUMAB VEDOTIN [Suspect]
     Active Substance: ENFORTUMAB VEDOTIN
     Indication: Product used for unknown indication
     Dosage: UNK, CYCLICAL (2ND CYCLE DAY 8 RE START, 85% DOSE)
     Route: 065
  4. ENFORTUMAB VEDOTIN [Suspect]
     Active Substance: ENFORTUMAB VEDOTIN
     Dosage: UNK,  CYCLICAL (3-5 CYCLE FULL DOSE)
     Route: 065
  5. ENFORTUMAB VEDOTIN [Suspect]
     Active Substance: ENFORTUMAB VEDOTIN
     Dosage: UNK, CYCLICAL (6 CYCLE 85% )
     Route: 065
     Dates: start: 20231207, end: 20231207
  6. ENFORTUMAB VEDOTIN [Suspect]
     Active Substance: ENFORTUMAB VEDOTIN
     Dosage: CYCLIC (3-5 CYCLE FULL DOSE)
     Route: 065
  7. ENFORTUMAB VEDOTIN [Suspect]
     Active Substance: ENFORTUMAB VEDOTIN
     Dosage: CYCLIC (6 CYCLE 85%)
     Route: 065
  8. ENFORTUMAB VEDOTIN [Suspect]
     Active Substance: ENFORTUMAB VEDOTIN
     Dosage: CYCLIC (3-5 CYCLE FULL DOSE)
     Route: 065
  9. ENFORTUMAB VEDOTIN [Suspect]
     Active Substance: ENFORTUMAB VEDOTIN
     Dosage: CYCLIC (6 CYCLE 85%)
     Route: 065
  10. EMPAGLIFLOZIN\METFORMIN HYDROCHLORIDE [Concomitant]
     Active Substance: EMPAGLIFLOZIN\METFORMIN HYDROCHLORIDE
     Indication: Product used for unknown indication
     Route: 065

REACTIONS (10)
  - Abdominal wall abscess [Unknown]
  - Polyneuropathy [Unknown]
  - Prostatectomy [Unknown]
  - Ureterectomy [Unknown]
  - Nephrectomy [Unknown]
  - Skin toxicity [Unknown]
  - Tissue infiltration [Unknown]
  - Soft tissue disorder [Unknown]
  - Product use issue [Unknown]
  - Off label use [Unknown]

NARRATIVE: CASE EVENT DATE: 20230101
